FAERS Safety Report 6510041-6 (Version None)
Quarter: 2009Q4

REPORT INFORMATION
  Report Type: 
  Country: None (occurrence: None)
  Receive Date: 20091222
  Receipt Date: 20091214
  Transmission Date: 20100525
  Serious: Yes (Other)
  Sender: FDA-Public Use
  Company Number: US-SANOFI-AVENTIS-2009SA009330

PATIENT
  Age: 9 Year
  Sex: Male

DRUGS (2)
  1. LOVENOX [Suspect]
     Indication: FACTOR V DEFICIENCY
     Dosage: WAS USING LOVENOX VIALS AND SWITCHED TO LOVENOX PRE-FILLED SYRINGES TWO AND A HALF WEEKS AGO
     Route: 023
     Dates: start: 20000901
  2. ALL OTHER THERAPEUTIC PRODUCTS [Concomitant]

REACTIONS (2)
  - CONVULSION [None]
  - NASAL CONGESTION [None]
